FAERS Safety Report 5948530-5 (Version None)
Quarter: 2008Q4

REPORT INFORMATION
  Report Type: 
  Country: None (occurrence: None)
  Receive Date: 20081111
  Receipt Date: 20081103
  Transmission Date: 20090506
  Serious: Yes (Other)
  Sender: FDA-Public Use
  Company Number: ES-AVENTIS-200816031EU

PATIENT
  Age: 86 Year
  Sex: Female

DRUGS (3)
  1. SEGURIL                            /00032601/ [Suspect]
     Route: 048
     Dates: start: 20080101, end: 20080505
  2. DIOVAN HCT [Suspect]
     Dosage: DOSE: 1 DF
     Route: 048
     Dates: start: 20080101, end: 20080505
  3. DIOVANE [Suspect]
     Dosage: DOSE: UNK
     Route: 048
     Dates: start: 20080101, end: 20080505

REACTIONS (4)
  - ABDOMINAL PAIN UPPER [None]
  - GENERAL PHYSICAL HEALTH DETERIORATION [None]
  - HYPONATRAEMIA [None]
  - NAUSEA [None]
